FAERS Safety Report 6429238-9 (Version None)
Quarter: 2009Q4

REPORT INFORMATION
  Report Type: 
  Country: None (occurrence: None)
  Receive Date: 20091105
  Receipt Date: 20091023
  Transmission Date: 20100525
  Serious: Yes (Hospitalization, Other)
  Sender: FDA-Public Use
  Company Number: PHHY2009MX42799

PATIENT
  Age: 80 Year
  Sex: Female

DRUGS (4)
  1. DIOVAN HCT [Suspect]
     Indication: HYPERTENSION
     Dosage: 1 TABLET (160/25 MG) PER DAY
     Dates: start: 20050101, end: 20090901
  2. ADALAT [Concomitant]
     Dosage: UNK
  3. TAMOXIFEN CITRATE [Concomitant]
     Dosage: UNK
  4. DRUG THERAPY NOS [Concomitant]
     Dosage: UNK

REACTIONS (4)
  - BLOOD PRESSURE DECREASED [None]
  - BLOOD PRESSURE INCREASED [None]
  - BREAST CANCER [None]
  - MASTECTOMY [None]
